FAERS Safety Report 15190455 (Version 1)
Quarter: 2018Q3

REPORT INFORMATION
  Report Type: Report from Study
  Country: CN (occurrence: CN)
  Receive Date: 20180724
  Receipt Date: 20180724
  Transmission Date: 20181010
  Serious: Yes (Hospitalization)
  Sender: FDA-Public Use
  Company Number: CN-SA-2018SA195291

PATIENT
  Age: 61 Year
  Sex: Male
  Weight: 71 kg

DRUGS (5)
  1. CYCLOSPORINE. [Concomitant]
     Active Substance: CYCLOSPORINE
     Dosage: 250 MG, QD
  2. ANTI?THYMOCYTE GLOBULIN (RABBIT) NOS [Suspect]
     Active Substance: LAPINE T-LYMPHOCYTE IMMUNE GLOBULIN
     Dosage: 25 MG
     Dates: start: 20170224, end: 20170225
  3. PREDNISONE. [Concomitant]
     Active Substance: PREDNISONE
     Dosage: 30 MG, QD
  4. ANTI?THYMOCYTE GLOBULIN (RABBIT) NOS [Suspect]
     Active Substance: LAPINE T-LYMPHOCYTE IMMUNE GLOBULIN
     Dosage: 50 MG
     Dates: start: 20170223, end: 20170223
  5. MYCOPHENOLATE MOFETIL. [Concomitant]
     Active Substance: MYCOPHENOLATE MOFETIL
     Dosage: 750 MG, QD

REACTIONS (1)
  - Thrombosis [Recovered/Resolved]

NARRATIVE: CASE EVENT DATE: 20170307
